FAERS Safety Report 6361099-9 (Version None)
Quarter: 2009Q3

REPORT INFORMATION
  Report Type: 
  Country: None (occurrence: None)
  Receive Date: 20090918
  Receipt Date: 20090908
  Transmission Date: 20100115
  Serious: Yes (Hospitalization, Other)
  Sender: FDA-Public Use
  Company Number: US-AVENTIS-200917999US

PATIENT
  Age: 37 Year
  Sex: Male

DRUGS (4)
  1. LANTUS [Suspect]
     Route: 058
  2. LANTUS [Suspect]
     Route: 058
  3. SIMVASTATIN [Concomitant]
     Dosage: DOSE: UNK
  4. ASPIRIN [Concomitant]
     Dosage: DOSE: UNK

REACTIONS (7)
  - HYPERHIDROSIS [None]
  - HYPOGLYCAEMIA [None]
  - HYPOKALAEMIA [None]
  - INTENTIONAL OVERDOSE [None]
  - SUICIDE ATTEMPT [None]
  - TACHYCARDIA [None]
  - TREMOR [None]
